FAERS Safety Report 7294387-2 (Version None)
Quarter: 2011Q1

REPORT INFORMATION
  Report Type: 
  Country: None (occurrence: None)
  Receive Date: 20110215
  Receipt Date: 20110207
  Transmission Date: 20110831
  Serious: Yes (Other)
  Sender: FDA-Public Use
  Company Number: US-AMGEN-USASP2011007217

PATIENT
  Age: 13 Year
  Sex: Female

DRUGS (2)
  1. INFLUENZA VACCINE [Concomitant]
  2. ENBREL [Suspect]
     Indication: JUVENILE ARTHRITIS
     Dates: start: 20100807

REACTIONS (1)
  - JUVENILE ARTHRITIS [None]
